FAERS Safety Report 10195282 (Version 2)
Quarter: 2014Q2

REPORT INFORMATION
  Report Type: Spontaneous
  Country: JP (occurrence: JP)
  Receive Date: 20140526
  Receipt Date: 20140625
  Transmission Date: 20141212
  Serious: Yes (Hospitalization)
  Sender: FDA-Public Use
  Company Number: JP-JNJFOC-20140512388

PATIENT
  Age: 72 Year
  Sex: Male
  Weight: 65 kg

DRUGS (7)
  1. XARELTO [Suspect]
     Indication: THROMBOSIS PROPHYLAXIS
     Route: 048
     Dates: start: 20140221, end: 20140514
  2. UNFRACTIONATED HEPARIN [Concomitant]
     Route: 065
     Dates: start: 20140514
  3. UNFRACTIONATED HEPARIN [Concomitant]
     Route: 065
     Dates: start: 201404
  4. WARFARIN POTASSIUM [Concomitant]
     Route: 048
  5. VASOLAN [Concomitant]
     Route: 048
     Dates: start: 20140221
  6. MAINTATE [Concomitant]
     Route: 048
     Dates: start: 20140221
  7. ALDACTONE A [Concomitant]
     Route: 048
     Dates: start: 20140221, end: 20140514

REACTIONS (1)
  - Cerebral infarction [Recovering/Resolving]
